FAERS Safety Report 8078218-9 (Version None)
Quarter: 2012Q1

REPORT INFORMATION
  Report Type: 
  Country: None (occurrence: None)
  Receive Date: 20120127
  Receipt Date: 20110127
  Transmission Date: 20120608
  Serious: No
  Sender: FDA-Public Use
  Company Number: US-ABBOTT-10P-163-0693926-00

PATIENT
  Sex: Male
  Weight: 77.18 kg

DRUGS (3)
  1. AZATHIOPRINE [Concomitant]
     Indication: ANKYLOSING SPONDYLITIS
  2. TERBINAFINE HCL [Concomitant]
     Indication: TINEA PEDIS
  3. HUMIRA [Suspect]
     Indication: ANKYLOSING SPONDYLITIS
     Dates: start: 20080101

REACTIONS (3)
  - WRONG TECHNIQUE IN DRUG USAGE PROCESS [None]
  - INJECTION SITE PAIN [None]
  - INCORRECT DOSE ADMINISTERED [None]
